FAERS Safety Report 7683904-6 (Version None)
Quarter: 2011Q3

REPORT INFORMATION
  Report Type: 
  Country: None (occurrence: None)
  Receive Date: 20110815
  Receipt Date: 20110810
  Transmission Date: 20111222
  Serious: Yes (Other)
  Sender: FDA-Public Use
  Company Number: US-PFIZER INC-2011171437

PATIENT
  Sex: Female
  Weight: 72.6 kg

DRUGS (22)
  1. POTASSIUM [Concomitant]
     Indication: SUPPLEMENTATION THERAPY
     Dosage: UNK
  2. ACETAMINOPHEN [Concomitant]
     Indication: PAIN
     Dosage: UNK
  3. HYALURONIC ACID [Concomitant]
     Indication: ARTHRITIS
     Dosage: 100 MG, 1X/DAY
  4. LOVAZA [Concomitant]
     Dosage: UNK
  5. LYRICA [Suspect]
     Dosage: UNK
  6. PROTONIX [Concomitant]
     Indication: GASTROOESOPHAGEAL REFLUX DISEASE
     Dosage: 40 MG, 2X/DAY
  7. ACETYLSALICYLIC ACID [Concomitant]
     Indication: CARDIAC DISORDER
     Dosage: 325 MG, 1X/DAY
  8. LASIX [Concomitant]
     Indication: OEDEMA PERIPHERAL
     Dosage: 40 MG, UNK
  9. AVAPRO [Concomitant]
     Dosage: 150 MG, UNK
  10. GLUCOSAMINE [Concomitant]
     Indication: ARTHRITIS
     Dosage: 1500 MG, 1X/DAY
  11. MAGNESIUM [Concomitant]
     Dosage: UNK
  12. VITAMIN B COMPLEX CAP [Concomitant]
     Dosage: UNK
  13. LYRICA [Suspect]
     Indication: HERPES ZOSTER
     Dosage: 50 MG, 1X/DAY
     Route: 048
     Dates: start: 20110301, end: 20110101
  14. LYRICA [Suspect]
     Dosage: 150 MG, 1X/DAY
     Route: 048
     Dates: start: 20110101
  15. CYMBALTA [Concomitant]
     Indication: PAIN
     Dosage: 60 MG, 1X/DAY
  16. XANAX [Concomitant]
     Dosage: UNK
  17. LYRICA [Suspect]
     Dosage: 100 MG, 1X/DAY
     Route: 048
     Dates: start: 20110101, end: 20110101
  18. LIPITOR [Concomitant]
     Indication: BLOOD CHOLESTEROL INCREASED
     Dosage: 10 MG, 1X/DAY
  19. DOXEPIN [Concomitant]
     Indication: DEPRESSION
     Dosage: 100 MG, 1X/DAY
  20. RISPERDAL [Concomitant]
     Indication: DEPRESSION
     Dosage: 1 MG, 1X/DAY
  21. CALCIUM [Concomitant]
     Dosage: UNK
  22. CELEBREX [Concomitant]
     Indication: ARTHRITIS
     Dosage: 200 MG, 1X/DAY

REACTIONS (7)
  - BRONCHITIS [None]
  - ARTHRITIS [None]
  - TREMOR [None]
  - COUGH [None]
  - NEURALGIA [None]
  - HERPES ZOSTER [None]
  - PAIN [None]
